FAERS Safety Report 8352412-1 (Version None)
Quarter: 2012Q2

REPORT INFORMATION
  Report Type: 
  Country: None (occurrence: None)
  Receive Date: 20120511
  Receipt Date: 20120507
  Transmission Date: 20120825
  Serious: Yes (Life-Threatening)
  Sender: FDA-Public Use
  Company Number: CN-ASTRAZENECA-2012SE28146

PATIENT
  Age: 48 Year
  Sex: Female
  Weight: 69 kg

DRUGS (7)
  1. PROPOFOL [Suspect]
     Indication: GENERAL ANAESTHESIA
     Route: 042
  2. MIDAZOLAM [Suspect]
     Route: 065
  3. CISATRACURIUM BESYLATE [Suspect]
     Dosage: 0.15 MG/KG
     Route: 065
  4. DEXAMETHASONE [Suspect]
     Route: 065
  5. PENEHYCLIDINE HYDROCHLORIDE [Suspect]
     Route: 065
  6. SUFENTANIL [Concomitant]
     Dosage: 0.5 UG/KG
  7. EQUILIBRIUM LIQUID [Suspect]
     Route: 065

REACTIONS (2)
  - ACUTE PULMONARY OEDEMA [None]
  - LEFT VENTRICULAR FAILURE [None]
